FAERS Safety Report 17415687 (Version 1)
Quarter: 2020Q1

REPORT INFORMATION
  Report Type: Spontaneous
  Country: US (occurrence: US)
  Receive Date: 20200130
  Receipt Date: 20200130
  Transmission Date: 20200409
  Serious: No
  Sender: FDA-Public Use
  Company Number: None

PATIENT
  Age: 81 Year
  Sex: Female

DRUGS (1)
  1. MYCOPHENOLATE MOFETIL 500MG TABLET [Suspect]
     Active Substance: MYCOPHENOLATE MOFETIL
     Route: 048
     Dates: start: 20191121

REACTIONS (5)
  - Diarrhoea [None]
  - Eye irritation [None]
  - Chills [None]
  - Feeling cold [None]
  - Nausea [None]

NARRATIVE: CASE EVENT DATE: 20200130
